FAERS Safety Report 22022003 (Version 4)
Quarter: 2024Q3

REPORT INFORMATION
  Report Type: Report from Study
  Country: BR (occurrence: BR)
  Receive Date: 20230222
  Receipt Date: 20240814
  Transmission Date: 20241016
  Serious: Yes (Other)
  Sender: NOVARTIS
  Company Number: BR-002147023-NVSC2022BR257686

PATIENT
  Age: 73 Year
  Sex: Female

DRUGS (2)
  1. KISQALI [Suspect]
     Active Substance: RIBOCICLIB
     Indication: Product used for unknown indication
     Dosage: 3 DOSAGE FORM, UNKNOWN
     Route: 065
     Dates: start: 20221107
  2. KISQALI [Suspect]
     Active Substance: RIBOCICLIB
     Dosage: 2 DOSAGE FORM, QD
     Route: 065
     Dates: start: 2023

REACTIONS (18)
  - Neoplasm malignant [Not Recovered/Not Resolved]
  - Skin reaction [Unknown]
  - Malaise [Unknown]
  - Decreased immune responsiveness [Recovering/Resolving]
  - Skin discolouration [Not Recovered/Not Resolved]
  - Pulmonary pain [Recovered/Resolved]
  - Acarodermatitis [Unknown]
  - Nausea [Recovered/Resolved]
  - Vomiting [Recovered/Resolved]
  - Back pain [Unknown]
  - Pruritus [Not Recovered/Not Resolved]
  - Rash [Not Recovered/Not Resolved]
  - Nausea [Recovering/Resolving]
  - Osteoarthritis [Recovering/Resolving]
  - Somnolence [Recovering/Resolving]
  - Diarrhoea [Recovered/Resolved]
  - Memory impairment [Unknown]
  - Herpes virus infection [Unknown]

NARRATIVE: CASE EVENT DATE: 20221109
